FAERS Safety Report 7937628-8 (Version None)
Quarter: 2011Q4

REPORT INFORMATION
  Report Type: 
  Country: None (occurrence: None)
  Receive Date: 20111123
  Receipt Date: 20111014
  Transmission Date: 20120403
  Serious: No
  Sender: FDA-Public Use
  Company Number: US-BAYER-2011-101851

PATIENT
  Age: 59 Year
  Sex: Male

DRUGS (4)
  1. COREG [Concomitant]
  2. LEVITRA [Suspect]
     Indication: ERECTILE DYSFUNCTION
     Dosage: 10 MG, UNK
     Route: 048
     Dates: start: 20101001
  3. LISINOPRIL [Concomitant]
  4. ZOCOR [Concomitant]

REACTIONS (1)
  - NO ADVERSE EVENT [None]
